FAERS Safety Report 10272731 (Version 1)
Quarter: 2014Q2

REPORT INFORMATION
  Report Type: Spontaneous
  Country: US (occurrence: None)
  Receive Date: 20140630
  Receipt Date: 20140630
  Transmission Date: 20141212
  Serious: Yes (Hospitalization)
  Sender: FDA-Public Use
  Company Number: None

PATIENT
  Age: 56 Year
  Sex: Male
  Weight: 122.47 kg

DRUGS (10)
  1. INVOKANA [Suspect]
     Indication: DIABETES MELLITUS
     Dosage: 1 PILL
     Route: 048
     Dates: start: 20130522, end: 20130528
  2. VIIBRYD [Concomitant]
  3. CORAL CALCIUM PLUS [Concomitant]
  4. D3 [Concomitant]
  5. FERROUS SULFATE [Concomitant]
  6. C [Concomitant]
  7. FLAX SEED OIL [Concomitant]
  8. OMEGA 3 [Concomitant]
  9. POTASSIUM CITRATE [Concomitant]
  10. GLUCO SCIENCE [Concomitant]

REACTIONS (5)
  - Diabetic ketoacidosis [None]
  - Hyperkalaemia [None]
  - Hypocalcaemia [None]
  - Hypophosphataemia [None]
  - Renal failure acute [None]
